FAERS Safety Report 23856268 (Version 1)
Quarter: 2024Q2

REPORT INFORMATION
  Report Type: Spontaneous
  Country: JO (occurrence: JO)
  Receive Date: 20240515
  Receipt Date: 20240515
  Transmission Date: 20240716
  Serious: Yes (Hospitalization)
  Sender: FDA-Public Use
  Company Number: JO-GLANDPHARMA-JO-2024GLNLIT00121

PATIENT
  Age: 47 Year
  Sex: Male

DRUGS (5)
  1. VANCOMYCIN HYDROCHLORIDE [Suspect]
     Active Substance: VANCOMYCIN HYDROCHLORIDE
     Indication: Pneumonia klebsiella
     Route: 065
  2. AMIKACIN [Suspect]
     Active Substance: AMIKACIN
     Indication: Pneumonia klebsiella
     Route: 065
  3. COLISTIN [Suspect]
     Active Substance: COLISTIN
     Indication: Pneumonia klebsiella
     Route: 065
  4. MEROPENEM [Suspect]
     Active Substance: MEROPENEM
     Indication: Pneumonia klebsiella
     Route: 065
  5. DEXAMETHASONE [Suspect]
     Active Substance: DEXAMETHASONE
     Indication: Pneumonia klebsiella
     Route: 065

REACTIONS (2)
  - Urinary tract infection [Recovered/Resolved]
  - Product use in unapproved indication [Unknown]
